FAERS Safety Report 16425058 (Version 2)
Quarter: 2019Q2

REPORT INFORMATION
  Report Type: Report from Study
  Country: US (occurrence: US)
  Receive Date: 20190613
  Receipt Date: 20190618
  Transmission Date: 20190711
  Serious: Yes (Death, Hospitalization)
  Sender: FDA-Public Use
  Company Number: US-EISAI MEDICAL RESEARCH-EC-2019-050085

PATIENT
  Age: 76 Year
  Sex: Male
  Weight: 83.19 kg

DRUGS (1)
  1. LENVIMA [Suspect]
     Active Substance: LENVATINIB
     Indication: HEPATOCELLULAR CARCINOMA
     Route: 048
     Dates: start: 20181231

REACTIONS (6)
  - Myocardial infarction [Fatal]
  - Muscle spasms [Recovering/Resolving]
  - Wound [Not Recovered/Not Resolved]
  - Decreased appetite [Recovering/Resolving]
  - Blood pressure increased [Recovering/Resolving]
  - Dysphonia [Recovering/Resolving]

NARRATIVE: CASE EVENT DATE: 201901
